FAERS Safety Report 6270620-0 (Version None)
Quarter: 2009Q3

REPORT INFORMATION
  Report Type: 
  Country: None (occurrence: None)
  Receive Date: 20090716
  Receipt Date: 20090708
  Transmission Date: 20100115
  Serious: Yes (Hospitalization)
  Sender: FDA-Public Use
  Company Number: JP-ASTRAZENECA-2009AP02545

PATIENT
  Sex: Male

DRUGS (1)
  1. OMEPRAL [Suspect]
     Indication: GASTRIC ULCER
     Route: 048

REACTIONS (1)
  - LIVER DISORDER [None]
